FAERS Safety Report 16539063 (Version 21)
Quarter: 2021Q3

REPORT INFORMATION
  Report Type: Report from Study
  Country: CA (occurrence: CA)
  Receive Date: 20190708
  Receipt Date: 20210831
  Transmission Date: 20211014
  Serious: Yes (Other)
  Sender: FDA-Public Use
  Company Number: PHHY2019CA155399

PATIENT
  Age: 50 Year
  Sex: Female

DRUGS (8)
  1. ILARIS [Suspect]
     Active Substance: CANAKINUMAB
     Indication: MUCKLE-WELLS SYNDROME
     Dosage: 150 MG, Q2W
     Route: 058
     Dates: start: 20190703
  2. ILARIS [Suspect]
     Active Substance: CANAKINUMAB
     Dosage: 150 MG, Q2W
     Route: 058
     Dates: start: 2021
  3. ILARIS [Suspect]
     Active Substance: CANAKINUMAB
     Dosage: UNK
     Route: 065
     Dates: start: 20200625
  4. ILARIS [Suspect]
     Active Substance: CANAKINUMAB
     Dosage: UNK
     Route: 058
     Dates: start: 20200207
  5. ILARIS [Suspect]
     Active Substance: CANAKINUMAB
     Dosage: UNK
     Route: 065
     Dates: start: 20200612
  6. ILARIS [Suspect]
     Active Substance: CANAKINUMAB
     Dosage: 150 MG, Q4W
     Route: 058
     Dates: start: 20190826
  7. KINERET [Concomitant]
     Active Substance: ANAKINRA
     Indication: PRODUCT USED FOR UNKNOWN INDICATION
     Dosage: UNK
     Route: 065
  8. VITAMIN B12 [Concomitant]
     Active Substance: CYANOCOBALAMIN
     Indication: PRODUCT USED FOR UNKNOWN INDICATION
     Dosage: UNK
     Route: 065

REACTIONS (8)
  - Condition aggravated [Unknown]
  - Deafness [Unknown]
  - Blood pressure increased [Unknown]
  - Hyperacusis [Unknown]
  - Hypertension [Unknown]
  - Product use issue [Unknown]
  - Heart rate increased [Unknown]
  - Fatigue [Unknown]

NARRATIVE: CASE EVENT DATE: 20190703
